FAERS Safety Report 6666222-4 (Version None)
Quarter: 2010Q2

REPORT INFORMATION
  Report Type: 
  Country: None (occurrence: None)
  Receive Date: 20100402
  Receipt Date: 20100324
  Transmission Date: 20101027
  Serious: Yes (Hospitalization)
  Sender: FDA-Public Use
  Company Number: US-WATSON-2010-03782

PATIENT
  Sex: Male

DRUGS (1)
  1. FENTANYL-25 [Suspect]
     Indication: PAIN
     Dosage: 1 PATCH
     Route: 062
     Dates: start: 20100301, end: 20100324

REACTIONS (7)
  - BLOOD POTASSIUM INCREASED [None]
  - CONFUSIONAL STATE [None]
  - CONTUSION [None]
  - DISORIENTATION [None]
  - FALL [None]
  - HAEMORRHAGE [None]
  - SOMNOLENCE [None]
